FAERS Safety Report 18212886 (Version 1)
Quarter: 2020Q3

REPORT INFORMATION
  Report Type: Spontaneous
  Country: US (occurrence: US)
  Receive Date: 20200831
  Receipt Date: 20200831
  Transmission Date: 20201103
  Serious: Yes (Death, Disabling, Other)
  Sender: FDA-Public Use
  Company Number: US-SA-2020SA231708

PATIENT

DRUGS (2)
  1. ZANTAC 150 (RANITIDINE HYDROCHLORIDE) [Suspect]
     Active Substance: RANITIDINE HYDROCHLORIDE
     Indication: GASTROOESOPHAGEAL REFLUX DISEASE
     Dosage: 150 MG, BID
  2. ZANTAC 150 (RANITIDINE HYDROCHLORIDE) [Suspect]
     Active Substance: RANITIDINE HYDROCHLORIDE
     Indication: DYSPEPSIA

REACTIONS (12)
  - Anxiety [Unknown]
  - Psychiatric symptom [Unknown]
  - Disturbance in attention [Unknown]
  - Emotional distress [Unknown]
  - Asthenia [Unknown]
  - Discomfort [Unknown]
  - Malaise [Unknown]
  - Renal cancer metastatic [Fatal]
  - Loss of personal independence in daily activities [Unknown]
  - Illness [Unknown]
  - Sleep disorder [Unknown]
  - Depression [Unknown]

NARRATIVE: CASE EVENT DATE: 2018
